FAERS Safety Report 23536491 (Version 1)
Quarter: 2024Q1

REPORT INFORMATION
  Report Type: Report from Study
  Country: US (occurrence: US)
  Receive Date: 20240219
  Receipt Date: 20240219
  Transmission Date: 20240409
  Serious: No
  Sender: FDA-Public Use
  Company Number: US-AURINIA PHARMACEUTICALS INC.-AUR-004872

PATIENT
  Sex: Female

DRUGS (1)
  1. LUPKYNIS [Suspect]
     Active Substance: VOCLOSPORIN
     Indication: Lupus nephritis
     Dosage: 7.9 MILLIGRAM, BID
     Route: 048
     Dates: start: 20210811

REACTIONS (6)
  - Chronic sinusitis [Unknown]
  - Hypersensitivity [Unknown]
  - Sciatica [Unknown]
  - Back pain [Unknown]
  - Dysphagia [Unknown]
  - Dyspepsia [Unknown]
